FAERS Safety Report 23083991 (Version 1)
Quarter: 2023Q4

REPORT INFORMATION
  Report Type: Spontaneous
  Country: US (occurrence: US)
  Receive Date: 20231019
  Receipt Date: 20231019
  Transmission Date: 20240110
  Serious: No
  Sender: FDA-Public Use
  Company Number: US-PFIZER INC-202300332362

PATIENT
  Age: 66 Year
  Sex: Male

DRUGS (5)
  1. PAXLOVID [Suspect]
     Active Substance: NIRMATRELVIR\RITONAVIR
     Indication: COVID-19 treatment
     Dosage: UNK
     Dates: start: 20230926, end: 20231001
  2. LISINOPRIL [Concomitant]
     Active Substance: LISINOPRIL
     Dosage: UNK
     Dates: end: 20230926
  3. ATORVASTATIN [Concomitant]
     Active Substance: ATORVASTATIN
     Dosage: UNK
     Dates: end: 20230926
  4. OMEPRAZOLE [Concomitant]
     Active Substance: OMEPRAZOLE
     Dosage: UNK
  5. EZETIMIBE [Concomitant]
     Active Substance: EZETIMIBE
     Dosage: UNK

REACTIONS (1)
  - Therapeutic product effect incomplete [Recovered/Resolved]

NARRATIVE: CASE EVENT DATE: 20231001
